FAERS Safety Report 5134283-X (Version None)
Quarter: 2006Q4

REPORT INFORMATION
  Report Type: 
  Country: None (occurrence: None)
  Receive Date: 20061019
  Receipt Date: 20061010
  Transmission Date: 20070319
  Serious: Yes (Other)
  Sender: FDA-Public Use
  Company Number: BR-2006-031033

PATIENT
  Age: 32 Year
  Sex: Female
  Weight: 53 kg

DRUGS (1)
  1. MIRENA [Suspect]
     Indication: ENDOMETRIOSIS
     Dosage: 20 UG/DAY, CONT, INTRA-UTERINE
     Route: 015
     Dates: start: 20011101

REACTIONS (4)
  - DEEP VEIN THROMBOSIS [None]
  - MUSCLE DISORDER [None]
  - THROMBOPHLEBITIS [None]
  - THROMBOSIS [None]
